FAERS Safety Report 9235783 (Version 1)
Quarter: 2013Q2

REPORT INFORMATION
  Report Type: Spontaneous
  Country: BR (occurrence: BR)
  Receive Date: 20130417
  Receipt Date: 20130417
  Transmission Date: 20140414
  Serious: Yes (Hospitalization)
  Sender: FDA-Public Use
  Company Number: PHHY2013BR036082

PATIENT
  Sex: Female
  Weight: 22 kg

DRUGS (4)
  1. TEGRETOL [Suspect]
     Indication: TEMPERATURE REGULATION DISORDER
     Dosage: 10 ML, BID (100 ML SUSPENSION)
     Route: 048
     Dates: start: 20110909
  2. TEGRETOL [Suspect]
     Dosage: 5 ML, UNK
  3. TEGRETOL [Suspect]
     Dosage: 10 ML, UNK
  4. CARBAMAZEPINE [Suspect]
     Dosage: UNK UKN, (100 ML SUSPENSION)
     Route: 048
     Dates: start: 20130408

REACTIONS (2)
  - Hypokinesia [Recovered/Resolved]
  - Somnolence [Recovered/Resolved]
